FAERS Safety Report 10574430 (Version 2)
Quarter: 2020Q1

REPORT INFORMATION
  Report Type: Spontaneous
  Country: US (occurrence: US)
  Receive Date: 20141110
  Receipt Date: 20200321
  Transmission Date: 20200409
  Serious: Yes (Death, Hospitalization, Other)
  Sender: FDA-Public Use
  Company Number: US-MERCK-1411USA003274

PATIENT
  Sex: Male
  Weight: 81.63 kg

DRUGS (1)
  1. JANUVIA [Suspect]
     Active Substance: SITAGLIPTIN PHOSPHATE
     Indication: TYPE 2 DIABETES MELLITUS
     Dosage: 50 MG, ONCE DAILY
     Route: 048
     Dates: start: 200705

REACTIONS (17)
  - Metastases to lymph nodes [Fatal]
  - Abnormal loss of weight [Fatal]
  - Viral diarrhoea [Unknown]
  - Pancreatic carcinoma metastatic [Fatal]
  - Metastases to liver [Fatal]
  - Pneumonia [Unknown]
  - Arteriosclerosis [Unknown]
  - Diverticulum intestinal [Unknown]
  - Chronic obstructive pulmonary disease [Unknown]
  - Lymphadenopathy [Unknown]
  - Abdominal hernia [Unknown]
  - Chronic kidney disease [Unknown]
  - Metastases to peritoneum [Fatal]
  - Pancreatic cyst [Fatal]
  - Small intestinal obstruction [Unknown]
  - Renal artery stenosis [Unknown]
  - Metastases to lung [Fatal]

NARRATIVE: CASE EVENT DATE: 20100522
